FAERS Safety Report 4437347-9 (Version None)
Quarter: 2004Q3

REPORT INFORMATION
  Report Type: 
  Country: None (occurrence: None)
  Receive Date: 20040726
  Receipt Date: 20040326
  Transmission Date: 20050211
  Serious: No
  Sender: FDA-Public Use
  Company Number: USA040363279

PATIENT
  Age: 85 Year
  Sex: Female
  Weight: 59 kg

DRUGS (6)
  1. FORTEO [Suspect]
     Indication: OSTEOPOROSIS
     Dates: start: 20030901
  2. SECTRAL [Concomitant]
  3. SYNTHROID [Concomitant]
  4. TYLENOL PM [Concomitant]
  5. LIPITOR [Concomitant]
  6. CELEBREX [Concomitant]

REACTIONS (1)
  - TINNITUS [None]
